FAERS Safety Report 24191723 (Version 1)
Quarter: 2024Q3

REPORT INFORMATION
  Report Type: Report from Study
  Country: US (occurrence: US)
  Receive Date: 20240809
  Receipt Date: 20240809
  Transmission Date: 20241017
  Serious: Yes (Other)
  Sender: ABBVIE
  Company Number: US-ABBVIE-5865639

PATIENT
  Age: 54 Year
  Sex: Male

DRUGS (1)
  1. HUMIRA [Suspect]
     Active Substance: ADALIMUMAB
     Indication: Colitis ulcerative
     Route: 058
     Dates: start: 20231024

REACTIONS (6)
  - Intra-abdominal fluid collection [Not Recovered/Not Resolved]
  - Disorientation [Unknown]
  - Hepatic cirrhosis [Not Recovered/Not Resolved]
  - Asthenia [Unknown]
  - Dry mouth [Not Recovered/Not Resolved]
  - Hepatic function abnormal [Not Recovered/Not Resolved]

NARRATIVE: CASE EVENT DATE: 20240608
